FAERS Safety Report 4522804-7 (Version None)
Quarter: 2004Q4

REPORT INFORMATION
  Report Type: 
  Country: None (occurrence: None)
  Receive Date: 20041209
  Receipt Date: 20041130
  Transmission Date: 20050328
  Serious: Yes (Other)
  Sender: FDA-Public Use
  Company Number: AU-MERCK-0411AUS00247

PATIENT
  Age: 48 Year
  Sex: Male

DRUGS (5)
  1. VIOXX [Suspect]
     Route: 048
     Dates: start: 19990101, end: 20041001
  2. PRIMIDONE [Concomitant]
     Indication: CONVULSION
     Route: 065
  3. CLONAZEPAM [Concomitant]
     Indication: NERVOUSNESS
     Route: 065
  4. RANITIDINE HYDROCHLORIDE [Concomitant]
     Route: 065
  5. FLUTICASONE PROPIONATE [Concomitant]
     Route: 065

REACTIONS (9)
  - ASTHMA [None]
  - BALANCE DISORDER [None]
  - BLOOD PRESSURE FLUCTUATION [None]
  - CEREBROVASCULAR ACCIDENT [None]
  - DYSPEPSIA [None]
  - DYSURIA [None]
  - ERECTILE DYSFUNCTION [None]
  - SENSORY LOSS [None]
  - TREMOR [None]
